FAERS Safety Report 5704859-7 (Version None)
Quarter: 2008Q2

REPORT INFORMATION
  Report Type: 
  Country: None (occurrence: None)
  Receive Date: 20080414
  Receipt Date: 20080402
  Transmission Date: 20081010
  Serious: Yes (Hospitalization)
  Sender: FDA-Public Use
  Company Number: JP-PFIZER INC-2008029627

PATIENT
  Sex: Female

DRUGS (2)
  1. VFEND [Suspect]
     Indication: BRONCHOPULMONARY ASPERGILLOSIS
     Route: 042
     Dates: start: 20080321, end: 20080327
  2. VFEND [Suspect]
     Dosage: DAILY DOSE:4MG/KG
     Route: 042

REACTIONS (2)
  - ILEUS [None]
  - SCIATICA [None]
